FAERS Safety Report 6925983-7 (Version None)
Quarter: 2010Q3

REPORT INFORMATION
  Report Type: 
  Country: None (occurrence: None)
  Receive Date: 20100810
  Receipt Date: 20100730
  Transmission Date: 20110219
  Serious: Yes (Life-Threatening, Hospitalization)
  Sender: FDA-Public Use
  Company Number: B0468003A

PATIENT
  Sex: Female

DRUGS (2)
  1. LAMICTAL [Suspect]
     Indication: ADJUSTMENT DISORDER
     Dosage: ORAL
     Route: 048
     Dates: start: 20061214, end: 20070125
  2. CITALOPRAM HYDROBROMIDE [Concomitant]

REACTIONS (5)
  - AUTOIMMUNE DISORDER [None]
  - DRUG HYPERSENSITIVITY [None]
  - DRUG RASH WITH EOSINOPHILIA AND SYSTEMIC SYMPTOMS [None]
  - LYMPHOPROLIFERATIVE DISORDER [None]
  - VASCULITIS [None]
